FAERS Safety Report 25929204 (Version 1)
Quarter: 2025Q4

REPORT INFORMATION
  Report Type: Spontaneous
  Country: IN (occurrence: IN)
  Receive Date: 20251016
  Receipt Date: 20251016
  Transmission Date: 20260118
  Serious: Yes (Death, Other)
  Sender: DECIPHERA PHARMACEUTICALS
  Company Number: IN-DECIPHERA PHARMACEUTICALS LLC-2025IN001301

PATIENT
  Age: 45 Year
  Sex: Female

DRUGS (2)
  1. QINLOCK [Suspect]
     Active Substance: RIPRETINIB
     Indication: Gastrointestinal stromal tumour
     Dosage: 150 MILLIGRAM, QD
  2. QINLOCK [Suspect]
     Active Substance: RIPRETINIB
     Dosage: 150 MILLIGRAM, BID

REACTIONS (6)
  - Malignant neoplasm progression [Fatal]
  - Fatigue [Unknown]
  - Alopecia [Unknown]
  - Myalgia [Unknown]
  - Inappropriate schedule of product administration [Unknown]
  - Incorrect dose administered [Unknown]
